FAERS Safety Report 7323504-0 (Version None)
Quarter: 2011Q1

REPORT INFORMATION
  Report Type: 
  Country: None (occurrence: None)
  Receive Date: 20110301
  Receipt Date: 20110216
  Transmission Date: 20110831
  Serious: Yes (Other)
  Sender: FDA-Public Use
  Company Number: PHHY2011DE02459

PATIENT
  Age: 42 Year
  Sex: Female

DRUGS (3)
  1. BETA BLOCKING AGENTS [Concomitant]
  2. ZOMETA [Concomitant]
     Dosage: UNK
  3. FEMARA [Suspect]
     Indication: BREAST CANCER
     Route: 048
     Dates: end: 20110111

REACTIONS (8)
  - TRANSAMINASES INCREASED [None]
  - PARAESTHESIA [None]
  - JOINT STIFFNESS [None]
  - OEDEMA PERIPHERAL [None]
  - HYPOAESTHESIA [None]
  - BONE PAIN [None]
  - HEPATOMEGALY [None]
  - MUSCULAR WEAKNESS [None]
